FAERS Safety Report 11725623 (Version 1)
Quarter: 2015Q4

REPORT INFORMATION
  Report Type: Spontaneous
  Country: US (occurrence: US)
  Receive Date: 20151110
  Receipt Date: 20151110
  Transmission Date: 20160304
  Serious: No
  Sender: FDA-Public Use
  Company Number: US-ELI_LILLY_AND_COMPANY-US201109006315

PATIENT
  Age: 68 Year
  Sex: Female

DRUGS (3)
  1. ANALGESICS [Concomitant]
     Active Substance: UNSPECIFIED INGREDIENT
     Indication: PAIN
  2. FORTEO [Suspect]
     Active Substance: TERIPARATIDE
     Indication: OSTEOPOROSIS
     Dosage: 20 UG, QD
     Dates: start: 20110916
  3. METHOTREXATE [Concomitant]
     Active Substance: METHOTREXATE

REACTIONS (8)
  - Arthritis [Unknown]
  - Intentional product misuse [Unknown]
  - Pain [Unknown]
  - Hypersensitivity [Unknown]
  - Arthralgia [Recovering/Resolving]
  - Hypokinesia [Recovering/Resolving]
  - Alopecia [Unknown]
  - Limb deformity [Unknown]

NARRATIVE: CASE EVENT DATE: 20110917
